FAERS Safety Report 6234176-0 (Version None)
Quarter: 2009Q2

REPORT INFORMATION
  Report Type: 
  Country: None (occurrence: None)
  Receive Date: 20090611
  Receipt Date: 20090312
  Transmission Date: 20091009
  Serious: Yes (Hospitalization)
  Sender: FDA-Public Use
  Company Number: WAES 0903FRA00047

PATIENT
  Age: 77 Year
  Sex: Female

DRUGS (8)
  1. FOSAMAX PLUS D [Suspect]
     Indication: OSTEOPOROSIS
     Dosage: PO
     Route: 048
     Dates: start: 20081210, end: 20090204
  2. ATORVASTATIN CALCIUM [Concomitant]
  3. MELPHALAN [Concomitant]
  4. METFORMIN [Concomitant]
  5. METOPROLOL TARTRATE [Concomitant]
  6. PREDNISONE [Concomitant]
  7. ROSIGLITAZONE MALEATE [Concomitant]
  8. THALIDOMIDE [Concomitant]

REACTIONS (1)
  - PRURITUS [None]
